FAERS Safety Report 7309308-3 (Version None)
Quarter: 2011Q1

REPORT INFORMATION
  Report Type: 
  Country: None (occurrence: None)
  Receive Date: 20110223
  Receipt Date: 20110216
  Transmission Date: 20110831
  Serious: Yes (Other)
  Sender: FDA-Public Use
  Company Number: GB-TEVA-267919ISR

PATIENT
  Age: 62 Year
  Sex: Male
  Weight: 105.3 kg

DRUGS (1)
  1. TRIMETHOPRIM [Suspect]
     Indication: URINARY TRACT INFECTION
     Route: 048
     Dates: start: 20110110, end: 20110117

REACTIONS (2)
  - HAEMOGLOBIN DECREASED [None]
  - MELAENA [None]
